FAERS Safety Report 8295013-6 (Version None)
Quarter: 2012Q2

REPORT INFORMATION
  Report Type: 
  Country: None (occurrence: None)
  Receive Date: 20120418
  Receipt Date: 20120410
  Transmission Date: 20120825
  Serious: Yes (Life-Threatening, Hospitalization)
  Sender: FDA-Public Use
  Company Number: DE-JNJFOC-20120405464

PATIENT
  Sex: Female
  Weight: 61 kg

DRUGS (3)
  1. MARCUMAR [Concomitant]
     Dates: end: 20120101
  2. MARCUMAR [Concomitant]
     Dates: start: 20120201
  3. XARELTO [Suspect]
     Indication: ATRIAL FIBRILLATION
     Route: 048
     Dates: start: 20120202, end: 20120221

REACTIONS (4)
  - AGITATION [None]
  - DISCOMFORT [None]
  - CONSTIPATION [None]
  - ABDOMINAL DISCOMFORT [None]
